FAERS Safety Report 17334828 (Version 1)
Quarter: 2020Q1

REPORT INFORMATION
  Report Type: Report from Study
  Country: US (occurrence: US)
  Receive Date: 20200128
  Receipt Date: 20200128
  Transmission Date: 20200409
  Serious: Yes (Hospitalization)
  Sender: FDA-Public Use
  Company Number: US-BAUSCH-BL-2020-002215

PATIENT
  Age: 64 Year
  Sex: Female

DRUGS (2)
  1. XIFAXAN [Suspect]
     Active Substance: RIFAXIMIN
     Indication: HEPATIC ENCEPHALOPATHY
     Dosage: STARTED SEVERAL YEARS AGO, END DATE: ONE AND A HALF WEEKS AGO
     Route: 048
     Dates: end: 202001
  2. XIFAXAN [Suspect]
     Active Substance: RIFAXIMIN
     Dosage: STARTED ONE AND A HALF WEEKS AGO
     Route: 048
     Dates: start: 202001

REACTIONS (4)
  - Hepatic encephalopathy [Unknown]
  - Amnesia [Not Recovered/Not Resolved]
  - Intentional product use issue [Unknown]
  - Condition aggravated [Not Recovered/Not Resolved]

NARRATIVE: CASE EVENT DATE: 202001
